FAERS Safety Report 12224980 (Version 1)
Quarter: 2016Q1

REPORT INFORMATION
  Report Type: Spontaneous
  Country: US (occurrence: US)
  Receive Date: 20160331
  Receipt Date: 20160331
  Transmission Date: 20160526
  Serious: Yes (Other)
  Sender: FDA-Public Use
  Company Number: US-009507513-1603USA012911

PATIENT
  Sex: Female

DRUGS (1)
  1. NEXPLANON [Suspect]
     Active Substance: ETONOGESTREL
     Indication: CONTRACEPTION
     Dosage: ONE ROD EVERY THREE YEARS
     Route: 059
     Dates: start: 20160317, end: 20160324

REACTIONS (4)
  - Unintended pregnancy [Unknown]
  - Pregnancy with contraceptive device [Unknown]
  - Meningitis [Unknown]
  - Feeling abnormal [Unknown]

NARRATIVE: CASE EVENT DATE: 201603
